FAERS Safety Report 7817264-4 (Version None)
Quarter: 2011Q4

REPORT INFORMATION
  Report Type: 
  Country: None (occurrence: None)
  Receive Date: 20111017
  Receipt Date: 20110926
  Transmission Date: 20120403
  Serious: Yes (Hospitalization, Other)
  Sender: FDA-Public Use
  Company Number: JP-SANOFI-AVENTIS-2011SA058701

PATIENT
  Age: 79 Year
  Sex: Male
  Weight: 50 kg

DRUGS (9)
  1. LANIRAPID [Suspect]
     Indication: CARDIAC FAILURE
     Route: 048
     Dates: start: 20101201
  2. ALL OTHER THERAPEUTIC PRODUCTS [Concomitant]
     Route: 048
     Dates: start: 20101201
  3. SIGMART [Concomitant]
  4. PLAVIX [Suspect]
     Indication: MYOCARDIAL INFARCTION
     Dosage: STRENGTH: 75 MG
     Route: 048
     Dates: start: 20101214, end: 20110907
  5. ASPIRIN [Suspect]
     Indication: CORONARY ARTERIAL STENT INSERTION
     Route: 048
     Dates: start: 20101214
  6. CARVEDILOL [Concomitant]
  7. PLAVIX [Suspect]
     Indication: CORONARY ARTERIAL STENT INSERTION
     Dosage: STRENGTH: 75 MG
     Route: 048
     Dates: start: 20101214, end: 20110907
  8. WARFARIN SODIUM [Concomitant]
     Indication: ATRIAL FIBRILLATION
     Route: 048
     Dates: start: 20101201
  9. IMIDAPRIL HYDROCHLORIDE [Concomitant]

REACTIONS (2)
  - DECREASED APPETITE [None]
  - WEIGHT DECREASED [None]
